FAERS Safety Report 11224313 (Version 5)
Quarter: 2015Q3

REPORT INFORMATION
  Report Type: Spontaneous
  Country: US (occurrence: US)
  Receive Date: 20150629
  Receipt Date: 20150731
  Transmission Date: 20151125
  Serious: Yes (Hospitalization)
  Sender: FDA-Public Use
  Company Number: US-UNITED THERAPEUTICS-UNT-2015-007599

PATIENT
  Age: 59 Year
  Sex: Male
  Weight: 99.77 kg

DRUGS (3)
  1. COUMADIN [Concomitant]
     Active Substance: WARFARIN SODIUM
     Indication: PRODUCT USED FOR UNKNOWN INDICATION
  2. REMODULIN [Suspect]
     Active Substance: TREPROSTINIL
     Dosage: 0.039 ?G/KG, CONTINUING
     Route: 058
     Dates: start: 20140915
  3. REMODULIN [Suspect]
     Active Substance: TREPROSTINIL
     Indication: PULMONARY HYPERTENSION
     Dosage: 0.039 ?G/KG, CONTINUING
     Route: 058
     Dates: start: 20140826

REACTIONS (6)
  - Loss of consciousness [Unknown]
  - Fall [Unknown]
  - Respiratory disorder [Unknown]
  - Drug dose omission [Unknown]
  - Cardiac failure congestive [Unknown]
  - Pulmonary arterial hypertension [Unknown]

NARRATIVE: CASE EVENT DATE: 20150618
